APPROVED DRUG PRODUCT: ETHYOL
Active Ingredient: AMIFOSTINE
Strength: 375MG/VIAL
Dosage Form/Route: INJECTABLE;INJECTION
Application: N020221 | Product #002
Applicant: COSETTE PHARMACEUTICALS INC
Approved: Sep 10, 1999 | RLD: No | RS: No | Type: DISCN